FAERS Safety Report 7950460-4 (Version None)
Quarter: 2011Q4

REPORT INFORMATION
  Report Type: 
  Country: None (occurrence: None)
  Receive Date: 20111130
  Receipt Date: 20111114
  Transmission Date: 20120403
  Serious: Yes (Hospitalization)
  Sender: FDA-Public Use
  Company Number: JP-ROCHE-801251

PATIENT
  Sex: Female

DRUGS (4)
  1. MUCOSTA [Concomitant]
     Dosage: DOSE FORM: PERORAL AGENT.
     Route: 048
  2. VOLTAREN [Concomitant]
     Dosage: DOSE FORM: PERORAL AGENT.
     Route: 048
  3. ACTEMRA [Suspect]
     Indication: RHEUMATOID ARTHRITIS
     Route: 041
     Dates: start: 20090725, end: 20100807
  4. PREDNISOLONE [Concomitant]
     Dosage: DOSE FORM: PERORAL AGENT
     Route: 048
     Dates: start: 20100101, end: 20100101

REACTIONS (1)
  - JOINT DISLOCATION [None]
